FAERS Safety Report 9379779 (Version 1)
Quarter: 2013Q3

REPORT INFORMATION
  Report Type: Spontaneous
  Country: US (occurrence: None)
  Receive Date: 20130701
  Receipt Date: 20130701
  Transmission Date: 20140515
  Serious: Yes (Death)
  Sender: FDA-Public Use
  Company Number: None

PATIENT
  Age: 85 Year
  Sex: Male

DRUGS (2)
  1. LUCENTIS [Suspect]
     Indication: RETINAL VEIN OCCLUSION
     Dosage: EVERY TEN WEEKS
     Route: 031
     Dates: start: 20130513, end: 20130513
  2. LUCENTIS [Suspect]
     Indication: MACULAR OEDEMA
     Dosage: EVERY TEN WEEKS
     Route: 031
     Dates: start: 20130513, end: 20130513

REACTIONS (1)
  - Death [None]
